FAERS Safety Report 8162688-1 (Version None)
Quarter: 2012Q1

REPORT INFORMATION
  Report Type: 
  Country: None (occurrence: None)
  Receive Date: 20120103
  Receipt Date: 20111117
  Transmission Date: 20120608
  Serious: No
  Sender: FDA-Public Use
  Company Number: AE-2011-003634

PATIENT
  Age: 57 Year
  Sex: Male
  Weight: 86.1834 kg

DRUGS (7)
  1. VITAMIN D [Concomitant]
  2. PEGINTERFERON ( PEGINTERFERON ALFA-2A) [Concomitant]
  3. MILK THISTLE [Concomitant]
  4. INCIVEK [Suspect]
     Dosage: 2250 MG (750 MG,3 IN 1 D),ORAL
     Route: 048
     Dates: start: 20111019
  5. RIBAVIRIN [Concomitant]
  6. OMEPRAZOLE [Concomitant]
  7. TRAMADOL HCL [Concomitant]

REACTIONS (2)
  - FEELING ABNORMAL [None]
  - PRURITUS [None]
